FAERS Safety Report 4957331-6 (Version None)
Quarter: 2006Q1

REPORT INFORMATION
  Report Type: 
  Country: None (occurrence: None)
  Receive Date: 20060327
  Receipt Date: 20060320
  Transmission Date: 20060701
  Serious: Yes (Hospitalization)
  Sender: FDA-Public Use
  Company Number: S06-USA-01155-01

PATIENT
  Age: 86 Year
  Sex: Female

DRUGS (6)
  1. LEXAPRO [Suspect]
     Indication: DEPRESSION
     Dosage: 10 MG QD PO
     Route: 048
     Dates: start: 20060207, end: 20060318
  2. COUMADIN [Suspect]
     Dosage: UNK
     Route: 065
  3. ASPIRIN [Suspect]
     Dosage: 81 MG QD
  4. VERAPAMIL [Concomitant]
  5. ARSENIC [Concomitant]
  6. MELPHALAN [Concomitant]

REACTIONS (3)
  - DRUG INTERACTION [None]
  - LOWER GASTROINTESTINAL HAEMORRHAGE [None]
  - PLATELET COUNT DECREASED [None]
